FAERS Safety Report 17009472 (Version 2)
Quarter: 2019Q4

REPORT INFORMATION
  Report Type: Spontaneous
  Country: US (occurrence: US)
  Receive Date: 20191108
  Receipt Date: 20191227
  Transmission Date: 20200122
  Serious: Yes (Other)
  Sender: FDA-Public Use
  Company Number: US-SEBELA IRELAND LIMITED-2019SEB00230

PATIENT
  Sex: Male
  Weight: 86.17 kg

DRUGS (2)
  1. NAFTIN [Suspect]
     Active Substance: NAFTIFINE HYDROCHLORIDE
     Dosage: UNK, USING THE PRODUCT LESS FREQUENTLY (ALSO DESCRIBED AS ^NOT MUCH IN THE LAST COUPLE OF WEEKS.^)
     Route: 061
     Dates: start: 2019
  2. NAFTIN [Suspect]
     Active Substance: NAFTIFINE HYDROCHLORIDE
     Indication: BODY TINEA
     Dosage: UNK, 2X/DAY
     Route: 061
     Dates: start: 2019, end: 2019

REACTIONS (6)
  - Off label use [Not Recovered/Not Resolved]
  - Pruritus [Not Recovered/Not Resolved]
  - Intervertebral disc protrusion [Recovered/Resolved]
  - Gout [Recovered/Resolved]
  - Gait inability [Unknown]
  - Sciatica [Recovered/Resolved]

NARRATIVE: CASE EVENT DATE: 2019
